FAERS Safety Report 9366582 (Version 2)
Quarter: 2013Q3

REPORT INFORMATION
  Report Type: Spontaneous
  Country: US (occurrence: US)
  Receive Date: 20130625
  Receipt Date: 20130716
  Transmission Date: 20140515
  Serious: Yes (Hospitalization, Other)
  Sender: FDA-Public Use
  Company Number: US-PFIZER INC-2013186673

PATIENT
  Sex: Female
  Weight: 63.49 kg

DRUGS (4)
  1. CALAN SR [Suspect]
     Indication: MIGRAINE
     Route: 048
  2. CALAN SR [Suspect]
     Indication: PROPHYLAXIS
  3. VERAPAMIL HCL [Suspect]
     Indication: MIGRAINE
     Dosage: 60 MG (SIX TABLETS OF 10MG ), 3X/DAY
     Route: 048
     Dates: start: 201111, end: 201111
  4. VERAPAMIL HCL [Suspect]
     Indication: PROPHYLAXIS

REACTIONS (9)
  - Off label use [Unknown]
  - Complicated migraine [Unknown]
  - Visual field defect [Not Recovered/Not Resolved]
  - Craniocerebral injury [Unknown]
  - Gait disturbance [Not Recovered/Not Resolved]
  - Dysgraphia [Not Recovered/Not Resolved]
  - Personality change [Not Recovered/Not Resolved]
  - Fatigue [Not Recovered/Not Resolved]
  - Drug ineffective [Unknown]
